FAERS Safety Report 7460151-4 (Version None)
Quarter: 2011Q2

REPORT INFORMATION
  Report Type: 
  Country: None (occurrence: None)
  Receive Date: 20110427
  Receipt Date: 20110418
  Transmission Date: 20111010
  Serious: Yes (Hospitalization)
  Sender: FDA-Public Use
  Company Number: FR-20110071

PATIENT
  Age: 63 Year
  Sex: Male

DRUGS (14)
  1. ATROVENT (IPATROPIUM BROMIDE) (IPATROPIUM BROMIDE) [Concomitant]
  2. HEMIGOXINE (DIGOXINE) (DIGOXINE) [Concomitant]
  3. LAMICTAL [Concomitant]
  4. SERETIDE (FLUTICASONE, SALMETEROL) (FLUTICASONE, SALMETEROL) [Concomitant]
  5. DOXORUBICIN HCL [Suspect]
     Indication: THERAPEUTIC EMBOLISATION
     Route: 013
     Dates: start: 20100825
  6. INEXIUM (ESOMEPRAZOLE) (ESOMEPRAZOLE) [Concomitant]
  7. LIPIODOL (ETHIODIZED OIL) [Suspect]
     Indication: THERAPEUTIC EMBOLISATION
     Route: 013
     Dates: start: 20100825
  8. KENZEN (CANDESARTAN) (CANDESARTAN) [Concomitant]
  9. LASILIIX (FUROSEMIDE) (FUROSEMIDE) [Concomitant]
  10. PREVISCAN (FLUINDONE) (FLUINDONE) [Concomitant]
  11. CALCIPARINE(CALCIUM HEPARINE) (CALCIUM HEPARIN) [Concomitant]
  12. CORDARONE (AMIODARONE) (AMIODARONE) [Concomitant]
  13. SOLUPRED (PREDNISOLONE) (PREDNISLONE) [Concomitant]
  14. BRICANYL (TERBUTALINE) (TERBUTALINE) [Concomitant]

REACTIONS (7)
  - RESPIRATORY FAILURE [None]
  - TRANSFERRIN SATURATION DECREASED [None]
  - EJECTION FRACTION DECREASED [None]
  - RESPIRATORY ACIDOSIS [None]
  - HYPERTHERMIA [None]
  - DYSPNOEA [None]
  - OFF LABEL USE [None]
